FAERS Safety Report 7517017-0 (Version None)
Quarter: 2011Q2

REPORT INFORMATION
  Report Type: 
  Country: None (occurrence: None)
  Receive Date: 20110601
  Receipt Date: 20110524
  Transmission Date: 20111010
  Serious: Yes (Other)
  Sender: FDA-Public Use
  Company Number: US-BAYER-200816958NA

PATIENT
  Age: 49 Year
  Sex: Female
  Weight: 72.727 kg

DRUGS (42)
  1. CONTRAST MEDIA [Suspect]
     Indication: VENOGRAM
     Dates: start: 20040929, end: 20040929
  2. ASPIRIN [Concomitant]
  3. BENADRYL [Concomitant]
  4. HYDRALAZINE HCL [Concomitant]
  5. LISINOPRIL [Concomitant]
  6. VENOFER [Concomitant]
     Dosage: WITH DIALYSIS
     Route: 040
  7. HEPARIN [Concomitant]
     Dosage: BOLUS INFUSION POST DIALYSIS TREATMENT
  8. PRILOSEC [Concomitant]
  9. PROTONIX [Concomitant]
  10. SANDIMMUNE [Concomitant]
  11. TAXOL [Concomitant]
  12. OMNISCAN [Suspect]
     Route: 042
     Dates: start: 20060117, end: 20060117
  13. PROHANCE [Suspect]
     Route: 042
  14. ARIMIDEX [Concomitant]
  15. CYTOXAN [Concomitant]
  16. LOPRESSOR [Concomitant]
  17. PREDNISONE [Concomitant]
  18. CONTRAST MEDIA [Suspect]
     Dates: start: 20051026, end: 20051026
  19. ADRIAMYCIN PFS [Concomitant]
  20. NEPHRO-VITE [VITAMINS NOS] [Concomitant]
  21. REGLAN [Concomitant]
  22. MAGNEVIST [Suspect]
     Route: 042
  23. MULTIHANCE [Suspect]
     Route: 042
  24. CONTRAST MEDIA [Suspect]
     Indication: ANGIOGRAM
     Route: 042
     Dates: start: 20040310, end: 20040310
  25. CONTRAST MEDIA [Suspect]
     Dates: start: 20040924, end: 20040924
  26. CONTRAST MEDIA [Suspect]
     Dates: start: 20051125, end: 20051125
  27. AZATHIOPRINE [Concomitant]
  28. ZOCOR [Concomitant]
  29. HEPARIN [Concomitant]
     Dosage: IV MAINTENANCE DURING DIALYSIS
     Route: 042
  30. OPTIMARK [Suspect]
     Route: 042
  31. CALCIJEX [Concomitant]
  32. EPOGEN [Concomitant]
     Dosage: WITH DIALYSIS
     Route: 042
     Dates: start: 20040101
  33. PHENERGAN HCL [Concomitant]
  34. OMNISCAN [Suspect]
     Indication: NUCLEAR MAGNETIC RESONANCE IMAGING
     Dates: start: 20060116, end: 20060116
  35. ANTIVERT [Concomitant]
  36. PHOSLO [Concomitant]
     Route: 048
  37. ZEMPLAR [Concomitant]
  38. HEPARIN [Concomitant]
     Dosage: IV BOLUS DURING DIALYSIS
     Route: 040
  39. NORVASC [Concomitant]
  40. RENAGEL [Concomitant]
     Dosage: UNKNOWN; DOSE INCREASED TO 3 TABS TID MAY 2007
  41. SENSIPAR [Concomitant]
  42. SODIUM THIOSULFATE [Concomitant]

REACTIONS (30)
  - INJURY [None]
  - ANXIETY [None]
  - RASH [None]
  - PRURITUS [None]
  - JOINT RANGE OF MOTION DECREASED [None]
  - PAIN [None]
  - OEDEMA PERIPHERAL [None]
  - SKIN EXFOLIATION [None]
  - SKIN FISSURES [None]
  - NEURALGIA [None]
  - SKIN HYPERPIGMENTATION [None]
  - SKIN LESION [None]
  - EMOTIONAL DISTRESS [None]
  - SKIN INDURATION [None]
  - FIBROSIS [None]
  - GENERAL PHYSICAL HEALTH DETERIORATION [None]
  - SKIN PLAQUE [None]
  - SKIN TIGHTNESS [None]
  - SKIN BURNING SENSATION [None]
  - SKIN DISCOLOURATION [None]
  - MOBILITY DECREASED [None]
  - SKIN HYPERTROPHY [None]
  - DRY SKIN [None]
  - NEPHROGENIC SYSTEMIC FIBROSIS [None]
  - SCAR [None]
  - SKIN FIBROSIS [None]
  - SKIN DISORDER [None]
  - LOCAL SWELLING [None]
  - ERYTHEMA [None]
  - PAIN IN EXTREMITY [None]
